FAERS Safety Report 25022923 (Version 1)
Quarter: 2025Q1

REPORT INFORMATION
  Report Type: Spontaneous
  Country: US (occurrence: None)
  Receive Date: 20250227
  Receipt Date: 20250227
  Transmission Date: 20250409
  Serious: Yes (Death)
  Sender: FDA-CTU
  Company Number: None

PATIENT
  Age: 75 Year
  Sex: Male

DRUGS (1)
  1. OFEV [Suspect]
     Active Substance: NINTEDANIB
     Indication: Idiopathic pulmonary fibrosis
     Dosage: FREQUENCY : TWICE A DAY;?
     Route: 048
     Dates: start: 20231206, end: 20250225

REACTIONS (8)
  - Dyspnoea [None]
  - Productive cough [None]
  - Acute respiratory failure [None]
  - Interstitial lung disease [None]
  - Condition aggravated [None]
  - Acute respiratory distress syndrome [None]
  - Refusal of treatment by relative [None]
  - Oxygen saturation decreased [None]

NARRATIVE: CASE EVENT DATE: 20250225
